FAERS Safety Report 6546304-8 (Version None)
Quarter: 2010Q1

REPORT INFORMATION
  Report Type: 
  Country: None (occurrence: None)
  Receive Date: 20100122
  Receipt Date: 20100118
  Transmission Date: 20100710
  Serious: Yes (Hospitalization)
  Sender: FDA-Public Use
  Company Number: US-ROCHE-677410

PATIENT
  Sex: Female
  Weight: 63.5 kg

DRUGS (1)
  1. CAPECITABINE [Suspect]
     Dosage: DOSE: TWO TABS BID
     Route: 048
     Dates: start: 20091116, end: 20091229

REACTIONS (1)
  - NEOPLASM MALIGNANT [None]
